FAERS Safety Report 7458673-5 (Version None)
Quarter: 2011Q2

REPORT INFORMATION
  Report Type: 
  Country: None (occurrence: None)
  Receive Date: 20110504
  Receipt Date: 20110421
  Transmission Date: 20111010
  Serious: Yes (Other)
  Sender: FDA-Public Use
  Company Number: US-MYLANLABS-2011S1008325

PATIENT
  Age: 1 Month
  Sex: Female

DRUGS (6)
  1. PARACETAMOL [Concomitant]
     Dosage: PER ADMINISTRATION (7.5 MG/KG)
  2. PROPOFOL [Suspect]
     Indication: OFF LABEL USE
  3. ULTIVA [Suspect]
     Indication: OFF LABEL USE
  4. ROPIVACAINE HYDROCHLORIDE [Suspect]
  5. THEOPHYLLINE [Concomitant]
     Dosage: OFF LABEL USE
  6. SEVOFLURANE [Suspect]

REACTIONS (3)
  - DEVELOPMENTAL DELAY [None]
  - METABOLIC DISORDER [None]
  - CONVULSION [None]
